FAERS Safety Report 16341940 (Version 1)
Quarter: 2019Q2

REPORT INFORMATION
  Report Type: Spontaneous
  Country: PL (occurrence: PL)
  Receive Date: 20190522
  Receipt Date: 20190522
  Transmission Date: 20190711
  Serious: Yes (Hospitalization, Other)
  Sender: FDA-Public Use
  Company Number: PL-ROCHE-2322396

PATIENT
  Age: 32 Month
  Sex: Female

DRUGS (2)
  1. DIAZEPAM. [Suspect]
     Active Substance: DIAZEPAM
     Indication: PRODUCT USED FOR UNKNOWN INDICATION
     Route: 065
  2. DIPHTHERIA AND TETANUS TOXOIDS AND PERTUSSIS VACCINE ADSORBED AND HAEMOPHILUS B CONJUGATE VACCINE NOS [Suspect]
     Active Substance: DIPHTHERIA AND TETANUS TOXOIDS AND PERTUSSIS VACCINE ADSORBED AND HAEMOPHILUS B CONJUGATE VACCINE
     Indication: PROPHYLAXIS
     Route: 065

REACTIONS (6)
  - Gastrointestinal inflammation [Unknown]
  - Febrile convulsion [Unknown]
  - Drug ineffective [Unknown]
  - Pyrexia [Unknown]
  - Vomiting [Unknown]
  - Upper respiratory tract infection [Unknown]
